FAERS Safety Report 4353492-0 (Version None)
Quarter: 2004Q2

REPORT INFORMATION
  Report Type: 
  Country: None (occurrence: None)
  Receive Date: 20040505
  Receipt Date: 20040427
  Transmission Date: 20050107
  Serious: Yes (Hospitalization)
  Sender: FDA-Public Use
  Company Number: PHBS2004JP05823

PATIENT
  Age: 83 Year
  Sex: Female

DRUGS (3)
  1. TEGRETOL [Suspect]
     Indication: MIGRAINE
     Dosage: 200 MG/DAY
     Route: 048
     Dates: start: 20040410, end: 20040413
  2. ETODOLAC [Concomitant]
     Dosage: 200 MG/DAY
     Route: 048
     Dates: start: 20040411, end: 20040413
  3. EPERISONE [Concomitant]
     Dosage: 50 MG/DAY
     Route: 048
     Dates: start: 20040411, end: 20040413

REACTIONS (4)
  - CEREBRAL INFARCTION [None]
  - CIRCULATORY COLLAPSE [None]
  - DIZZINESS [None]
  - INCONTINENCE [None]
